FAERS Safety Report 7340138-2 (Version None)
Quarter: 2011Q1

REPORT INFORMATION
  Report Type: 
  Country: None (occurrence: None)
  Receive Date: 20110228
  Receipt Date: 20110217
  Transmission Date: 20110831
  Serious: Yes (Hospitalization)
  Sender: FDA-Public Use
  Company Number: 2010001056

PATIENT
  Age: 57 Year
  Sex: Female

DRUGS (6)
  1. LEVOFLOXACIN [Concomitant]
  2. LOPERAMIDE HYDROCHLORIDE [Concomitant]
  3. ERLOTINIB (ERLOTINIB) (TABLET) (ERLOTINIB) [Suspect]
     Indication: NON-SMALL CELL LUNG CANCER
     Dosage: (150 MG,QD),ORAL
     Route: 048
     Dates: start: 20090814, end: 20091001
  4. AZITHROMYCIN [Concomitant]
  5. GRILINCTUS [Concomitant]
  6. OMEPRAZOLE [Concomitant]

REACTIONS (4)
  - PYREXIA [None]
  - GASTROINTESTINAL DISORDER [None]
  - UPPER RESPIRATORY TRACT INFECTION [None]
  - COUGH [None]
